FAERS Safety Report 20370294 (Version 2)
Quarter: 2022Q1

REPORT INFORMATION
  Report Type: Spontaneous
  Country: ES (occurrence: ES)
  Receive Date: 20220124
  Receipt Date: 20220128
  Transmission Date: 20220423
  Serious: Yes (Other)
  Sender: FDA-Public Use
  Company Number: ES-009507513-2201ESP004478

PATIENT
  Age: 76 Year
  Sex: Male

DRUGS (1)
  1. JANUMET [Suspect]
     Active Substance: METFORMIN HYDROCHLORIDE\SITAGLIPTIN PHOSPHATE
     Indication: Type 2 diabetes mellitus

REACTIONS (4)
  - Diabetes mellitus [Not Recovered/Not Resolved]
  - Latent autoimmune diabetes in adults [Not Recovered/Not Resolved]
  - Product use in unapproved indication [Unknown]
  - Intercepted product prescribing error [Unknown]
